FAERS Safety Report 24898301 (Version 1)
Quarter: 2025Q1

REPORT INFORMATION
  Report Type: Other
  Country: FR (occurrence: FR)
  Receive Date: 20250129
  Receipt Date: 20250129
  Transmission Date: 20250408
  Serious: Yes (Hospitalization)
  Sender: ALVOGEN
  Company Number: FR-ALVOGEN-2025096174

PATIENT
  Age: 76 Year
  Sex: Male

DRUGS (6)
  1. OFLOXACIN [Suspect]
     Active Substance: OFLOXACIN
     Indication: Antibiotic prophylaxis
  2. ISONIAZID [Concomitant]
     Active Substance: ISONIAZID
     Indication: Tuberculosis
  3. RIFAMPIN [Concomitant]
     Active Substance: RIFAMPIN
     Indication: Tuberculosis
  4. ETHAMBUTOL [Concomitant]
     Active Substance: ETHAMBUTOL HYDROCHLORIDE
     Indication: Tuberculosis
  5. CORTICOSTEROID NOS [Concomitant]
     Active Substance: CORTICOSTEROID NOS
     Indication: Tuberculosis
  6. BCG VACCINE [Concomitant]
     Active Substance: BCG VACCINE
     Indication: Bladder neoplasm

REACTIONS (1)
  - Tendon disorder [Unknown]
